FAERS Safety Report 13050476 (Version 3)
Quarter: 2017Q1

REPORT INFORMATION
  Report Type: Report from Study
  Country: FR (occurrence: FR)
  Receive Date: 20161221
  Receipt Date: 20170120
  Transmission Date: 20170428
  Serious: Yes (Hospitalization)
  Sender: FDA-Public Use
  Company Number: FR-ASTELLAS-2016US049671

PATIENT
  Age: 51 Year
  Sex: Female

DRUGS (2)
  1. TACROLIMUS. [Suspect]
     Active Substance: TACROLIMUS
     Indication: RENAL TRANSPLANT
     Dosage: 3 UNSPECIFIED UNIT, ONCE DAILY
     Route: 065
     Dates: start: 20150929, end: 20161014
  2. MEDROL [Concomitant]
     Active Substance: METHYLPREDNISOLONE
     Indication: IMMUNOSUPPRESSION
     Dosage: 4 UNSPECIFIED UNIT  ONCE DAILY
     Route: 065
     Dates: start: 20041219

REACTIONS (1)
  - Transplant failure [Not Recovered/Not Resolved]

NARRATIVE: CASE EVENT DATE: 20160922
